FAERS Safety Report 5842141-8 (Version None)
Quarter: 2008Q3

REPORT INFORMATION
  Report Type: 
  Country: None (occurrence: None)
  Receive Date: 20080812
  Receipt Date: 20080807
  Transmission Date: 20090109
  Serious: Yes (Other)
  Sender: FDA-Public Use
  Company Number: US-JNJFOC-20080801856

PATIENT
  Age: 6 Year
  Sex: Male
  Weight: 18.14 kg

DRUGS (1)
  1. CHILDRENS TYLENOL PLUS MULTI-SYMPTOM COLD GRAPE [Suspect]
     Indication: PYREXIA
     Route: 048

REACTIONS (1)
  - MEDICATION TAMPERING [None]
